FAERS Safety Report 8184296-9 (Version None)
Quarter: 2012Q1

REPORT INFORMATION
  Report Type: 
  Country: None (occurrence: None)
  Receive Date: 20120305
  Receipt Date: 20120227
  Transmission Date: 20120608
  Serious: Yes (Hospitalization)
  Sender: FDA-Public Use
  Company Number: JP-TEVA-325189USA

PATIENT
  Age: 60 Year
  Sex: Male
  Weight: 55 kg

DRUGS (5)
  1. PALONOSETRON HYDROCHLORIDE [Concomitant]
  2. VALACYCLOVIR HYDROCHLORIDE [Concomitant]
  3. TREANDA [Suspect]
     Indication: B-CELL LYMPHOMA
     Route: 042
     Dates: start: 20110823
  4. RITUXIMAB [Concomitant]
     Indication: B-CELL LYMPHOMA
  5. BACTRIM [Concomitant]

REACTIONS (2)
  - APLASTIC ANAEMIA [None]
  - PANCYTOPENIA [None]
